FAERS Safety Report 10233488 (Version 3)
Quarter: 2014Q3

REPORT INFORMATION
  Report Type: Report from Study
  Country: CA (occurrence: CA)
  Receive Date: 20140612
  Receipt Date: 20140915
  Transmission Date: 20150326
  Serious: Yes (Hospitalization, Other)
  Sender: FDA-Public Use
  Company Number: PHHY2014CA072299

PATIENT
  Age: 42 Year
  Sex: Male

DRUGS (7)
  1. AZILECT [Concomitant]
     Active Substance: RASAGILINE MESYLATE
     Dosage: UNK UKN, UNK
  2. CLOZARIL [Suspect]
     Active Substance: CLOZAPINE
     Indication: DYSKINESIA
     Dosage: UNK UKN, UNK
     Dates: start: 20130708
  3. BUPROPION [Concomitant]
     Active Substance: BUPROPION
     Dosage: UNK UKN, UNK
  4. COMTAN [Concomitant]
     Active Substance: ENTACAPONE
     Dosage: UNK UKN, UNK
  5. CLOZARIL [Suspect]
     Active Substance: CLOZAPINE
     Indication: HALLUCINATION
     Dosage: 75 MG, (50 MG AT BED TIME, 20 MG AFTER DINNER)
     Route: 048
     Dates: start: 20130625
  6. SINEMET [Concomitant]
     Active Substance: CARBIDOPA\LEVODOPA
     Dosage: UNK UKN, UNK
  7. CLOZARIL [Suspect]
     Active Substance: CLOZAPINE
     Dosage: 50 MG, QHS
     Route: 048
     Dates: start: 20130827, end: 20140809

REACTIONS (11)
  - Head injury [Unknown]
  - Renal failure [Unknown]
  - Balance disorder [Unknown]
  - Orthostatic hypotension [Unknown]
  - Parkinson^s disease [Unknown]
  - Decubitus ulcer [Unknown]
  - Fall [Unknown]
  - Gastroenteritis viral [Recovered/Resolved]
  - Amnesia [Unknown]
  - Muscular weakness [Recovering/Resolving]
  - Rhabdomyolysis [Unknown]

NARRATIVE: CASE EVENT DATE: 20140606
